FAERS Safety Report 5024121-8 (Version None)
Quarter: 2006Q2

REPORT INFORMATION
  Report Type: 
  Country: None (occurrence: None)
  Receive Date: 20060607
  Receipt Date: 20060530
  Transmission Date: 20061013
  Serious: Yes (Other)
  Sender: FDA-Public Use
  Company Number: 225800

PATIENT
  Sex: 0

DRUGS (5)
  1. RITUXAN [Suspect]
     Indication: NON-HODGKIN'S LYMPHOMA
  2. FLUDARA [Concomitant]
  3. NOVANTRONE [Concomitant]
  4. DECADRON SRC [Concomitant]
  5. CYTOXAN [Concomitant]

REACTIONS (2)
  - EJECTION FRACTION DECREASED [None]
  - NON-HODGKIN'S LYMPHOMA RECURRENT [None]
